FAERS Safety Report 4350045-5 (Version None)
Quarter: 2004Q2

REPORT INFORMATION
  Report Type: 
  Country: None (occurrence: None)
  Receive Date: 20040429
  Receipt Date: 20040423
  Transmission Date: 20050107
  Serious: Yes (Death, Hospitalization)
  Sender: FDA-Public Use
  Company Number: PHEH2004US04587

PATIENT
  Age: 73 Year
  Sex: Male

DRUGS (9)
  1. ZELNORM [Suspect]
     Dates: start: 20040101, end: 20040101
  2. LANOXIN [Concomitant]
     Dosage: .25 MG, QD
  3. CALAN - SLOW RELEASE [Concomitant]
     Dosage: UNK, QD
  4. NEXIUM [Concomitant]
  5. FORADIL [Concomitant]
     Dosage: UNK, BID
  6. FLOVENT [Concomitant]
     Dosage: UNK, BID
  7. COMBIVENT [Concomitant]
  8. ALBUTEROL [Concomitant]
     Dosage: UNK, TID
  9. LORTAB [Concomitant]
     Dosage: UNK, PRN

REACTIONS (2)
  - MEDICATION ERROR [None]
  - PANCREATIC CARCINOMA [None]
